FAERS Safety Report 10363283 (Version 1)
Quarter: 2014Q3

REPORT INFORMATION
  Report Type: Spontaneous
  Country: JP (occurrence: JP)
  Receive Date: 20140805
  Receipt Date: 20140805
  Transmission Date: 20150326
  Serious: Yes (Other)
  Sender: FDA-Public Use
  Company Number: JP-PFIZER INC-2014217029

PATIENT
  Age: 50 Year
  Sex: Male

DRUGS (1)
  1. DIFLUCAN [Suspect]
     Active Substance: FLUCONAZOLE
     Indication: INFECTIVE SPONDYLITIS
     Dosage: 400 MG, 1X/DAY
     Route: 048

REACTIONS (1)
  - Renal impairment [Unknown]
